FAERS Safety Report 11246773 (Version 1)
Quarter: 2015Q3

REPORT INFORMATION
  Report Type: Spontaneous
  Country: US (occurrence: None)
  Receive Date: 20150706
  Receipt Date: 20150706
  Transmission Date: 20151125
  Serious: No
  Sender: FDA-Public Use
  Company Number: None

PATIENT
  Age: 37 Year
  Sex: Female
  Weight: 58.06 kg

DRUGS (2)
  1. KETOPROFEN 120 KETOPROFEN 20% IN PLO GEL [Suspect]
     Active Substance: KETOPROFEN
     Dosage: APPLY TWICE DAILY TWICE DAILY APPLIED TO A SURFACE, USUALLY THE SKIN
     Route: 061
     Dates: start: 20150605, end: 20150622
  2. KETOPROFEN 120 KETOPROFEN 20% IN PLO GEL [Suspect]
     Active Substance: KETOPROFEN
     Indication: TENDON PAIN
     Dosage: APPLY TWICE DAILY TWICE DAILY APPLIED TO A SURFACE, USUALLY THE SKIN
     Route: 061
     Dates: start: 20150605, end: 20150622

REACTIONS (2)
  - Application site vesicles [None]
  - Application site rash [None]

NARRATIVE: CASE EVENT DATE: 20150622
